FAERS Safety Report 16752118 (Version 6)
Quarter: 2020Q1

REPORT INFORMATION
  Report Type: Spontaneous
  Country: US (occurrence: US)
  Receive Date: 20190828
  Receipt Date: 20200210
  Transmission Date: 20200409
  Serious: No
  Sender: FDA-Public Use
  Company Number: US-009507513-1908USA007346

PATIENT
  Sex: Male

DRUGS (3)
  1. ASMANEX [Suspect]
     Active Substance: MOMETASONE FUROATE
     Dosage: 220MCG/60 DOSE, 2 PUFFS DAILY
     Route: 055
     Dates: start: 20190812
  2. ASMANEX [Suspect]
     Active Substance: MOMETASONE FUROATE
     Dosage: 220MCG/60 DOSE, 1 PUFF TWO TIMES A DAY, BID
     Route: 055
     Dates: start: 201910
  3. ASMANEX [Suspect]
     Active Substance: MOMETASONE FUROATE
     Dosage: 220MCG/60 DOSE
     Route: 055
     Dates: start: 2016

REACTIONS (6)
  - Poor quality device used [Unknown]
  - Product quality issue [Unknown]
  - Cardiac pacemaker insertion [Unknown]
  - No adverse event [Unknown]
  - Product quality issue [Unknown]
  - Poor quality device used [Unknown]

NARRATIVE: CASE EVENT DATE: 201908
